FAERS Safety Report 13499002 (Version 1)
Quarter: 2017Q2

REPORT INFORMATION
  Report Type: Spontaneous
  Country: IR (occurrence: IR)
  Receive Date: 20170501
  Receipt Date: 20170501
  Transmission Date: 20170830
  Serious: Yes (Hospitalization)
  Sender: FDA-Public Use
  Company Number: IR-JNJFOC-20170428150

PATIENT

DRUGS (1)
  1. TRAMADOL. [Suspect]
     Active Substance: TRAMADOL
     Indication: PRODUCT USED FOR UNKNOWN INDICATION
     Route: 065

REACTIONS (13)
  - Neurological symptom [Unknown]
  - Vomiting [Unknown]
  - Cardiovascular disorder [Unknown]
  - Hypertension [Unknown]
  - Urinary retention [Unknown]
  - Renal disorder [Unknown]
  - Respiratory disorder [Unknown]
  - Toxicity to various agents [Unknown]
  - Gastrointestinal disorder [Unknown]
  - Asthma [Unknown]
  - Eye disorder [Unknown]
  - Restlessness [Unknown]
  - Nausea [Unknown]
